FAERS Safety Report 18648794 (Version 1)
Quarter: 2020Q4

REPORT INFORMATION
  Report Type: Other
  Country: US (occurrence: US)
  Receive Date: 20201222
  Receipt Date: 20201222
  Transmission Date: 20210114
  Serious: Yes (Other)
  Sender: FDA-Public Use
  Company Number: US-DEXPHARM-20201146

PATIENT
  Sex: Male

DRUGS (4)
  1. OMEPRAZOLE. [Interacting]
     Active Substance: OMEPRAZOLE
  2. IBUPROFEN. [Suspect]
     Active Substance: IBUPROFEN
     Indication: PAIN
     Dosage: 400MG DAILY AS NEEDED
  3. PEMBROLIZUMAB. [Interacting]
     Active Substance: PEMBROLIZUMAB
  4. CARBOPLATIN. [Suspect]
     Active Substance: CARBOPLATIN
     Dosage: 4 CYCLES

REACTIONS (4)
  - Drug interaction [Recovered/Resolved]
  - Renal tubular acidosis [Recovered/Resolved]
  - Arteriosclerosis [Recovered/Resolved]
  - Tubulointerstitial nephritis [Recovered/Resolved]
